FAERS Safety Report 8560705 (Version 13)
Quarter: 2014Q3

REPORT INFORMATION
  Report Type: Spontaneous
  Country: US (occurrence: US)
  Receive Date: 20120514
  Receipt Date: 20140714
  Transmission Date: 20150326
  Serious: Yes (Hospitalization, Other)
  Sender: FDA-Public Use
  Company Number: US-MERCK-1205USA01762

PATIENT
  Sex: Female
  Weight: 64.85 kg

DRUGS (5)
  1. FOSAMAX [Suspect]
     Active Substance: ALENDRONATE SODIUM
     Indication: OSTEOPOROSIS
     Dosage: 10 MG, QD
     Route: 048
     Dates: start: 1996
  2. FOSAMAX PLUS D [Suspect]
     Active Substance: ALENDRONATE SODIUM\CHOLECALCIFEROL
     Indication: OSTEOPOROSIS
     Dosage: UNK
     Route: 048
     Dates: start: 20060227
  3. VITAMINS (UNSPECIFIED) [Concomitant]
     Active Substance: VITAMINS
     Dosage: 1 DF, QD
     Dates: start: 1990
  4. FOSAMAX [Suspect]
     Active Substance: ALENDRONATE SODIUM
     Dosage: 70 MG, QW
     Route: 048
     Dates: start: 20010414, end: 2010
  5. ALENDRONATE SODIUM. [Suspect]
     Active Substance: ALENDRONATE SODIUM
     Dosage: 70 MG, UNK
     Route: 048

REACTIONS (59)
  - Syncope [Unknown]
  - Device related infection [Unknown]
  - Low turnover osteopathy [Unknown]
  - Incision site infection [Unknown]
  - Exostosis [Unknown]
  - Osteoarthritis [Unknown]
  - Uterine dilation and curettage [Unknown]
  - Aortic disorder [Unknown]
  - Drug hypersensitivity [Unknown]
  - Acute coronary syndrome [Unknown]
  - Hypersensitivity [Unknown]
  - Ankle fracture [Unknown]
  - Spinal compression fracture [Unknown]
  - Limb injury [Unknown]
  - Atrial fibrillation [Recovered/Resolved]
  - Haemorrhagic anaemia [Not Recovered/Not Resolved]
  - Device failure [Unknown]
  - White blood cells urine positive [Unknown]
  - Urine ketone body present [Unknown]
  - Femur fracture [Unknown]
  - Fracture reduction [Unknown]
  - Hip arthroplasty [Unknown]
  - Hip arthroplasty [Unknown]
  - Varicose vein [Unknown]
  - Weight loss poor [Unknown]
  - Hyperlipidaemia [Unknown]
  - Osteoarthritis [Unknown]
  - Osteopenia [Unknown]
  - Pulmonary embolism [Unknown]
  - Pulmonary hypertension [Unknown]
  - Adverse drug reaction [Unknown]
  - Vena cava filter insertion [Unknown]
  - Hip arthroplasty [Unknown]
  - Sepsis [Unknown]
  - Atrial fibrillation [Unknown]
  - Anaphylactic reaction [Unknown]
  - Device related infection [Unknown]
  - Electrocardiogram ST segment abnormal [Unknown]
  - Hip arthroplasty [Unknown]
  - Hip arthroplasty [Unknown]
  - Incisional drainage [Unknown]
  - Body height decreased [Unknown]
  - Urine leukocyte esterase positive [Unknown]
  - Red blood cells urine [Unknown]
  - Arthralgia [Unknown]
  - Nausea [Unknown]
  - Gastritis [Unknown]
  - Knee arthroplasty [Unknown]
  - Heparin-induced thrombocytopenia [Unknown]
  - Bursitis [Not Recovered/Not Resolved]
  - Vitamin D deficiency [Unknown]
  - Spinal osteoarthritis [Unknown]
  - Arthralgia [Unknown]
  - Hip arthroplasty [Unknown]
  - Deep vein thrombosis [Recovering/Resolving]
  - Medical device removal [Unknown]
  - Rib fracture [Recovering/Resolving]
  - Kyphosis [Unknown]
  - Bone pain [Unknown]

NARRATIVE: CASE EVENT DATE: 20010908
